FAERS Safety Report 4833954-X (Version None)
Quarter: 2005Q4

REPORT INFORMATION
  Report Type: 
  Country: None (occurrence: None)
  Receive Date: 20051118
  Receipt Date: 20051118
  Transmission Date: 20060501
  Serious: Yes (Other)
  Sender: FDA-Public Use
  Company Number: None

PATIENT
  Sex: Male

DRUGS (1)
  1. FLOMAX [Suspect]
     Indication: BENIGN PROSTATIC HYPERPLASIA
     Dosage: 1 CAPSULE BY MOUTH AT BEDTIME
     Route: 048
     Dates: start: 20050615, end: 20050824

REACTIONS (3)
  - PHARMACEUTICAL PRODUCT COMPLAINT [None]
  - URINARY TRACT DISORDER [None]
  - URINE FLOW DECREASED [None]
